FAERS Safety Report 8818960 (Version 2)
Quarter: 2013Q1

REPORT INFORMATION
  Report Type: Spontaneous
  Country: BR (occurrence: BR)
  Receive Date: 20121001
  Receipt Date: 20130222
  Transmission Date: 20140127
  Serious: Yes (Other)
  Sender: FDA-Public Use
  Company Number: PHHY2012BR082454

PATIENT
  Age: 61 Year
  Sex: Male
  Weight: 75 kg

DRUGS (3)
  1. AREDIA [Suspect]
     Indication: BONE CANCER METASTATIC
     Dosage: 90 MG, ONCE A MONTH
     Route: 042
     Dates: start: 201203, end: 201209
  2. LECTRUM [Suspect]
     Dosage: 3.75 MG, QMO
     Route: 030
     Dates: start: 201203
  3. LOSARTAN [Concomitant]
     Indication: HYPERTENSION
     Dosage: 50 MG, QD
     Route: 048
     Dates: start: 201202

REACTIONS (3)
  - Migraine [Recovered/Resolved]
  - Pyrexia [Recovered/Resolved]
  - Headache [Recovered/Resolved]
